FAERS Safety Report 9997864 (Version 2)
Quarter: 2014Q1

REPORT INFORMATION
  Report Type: Report from Study
  Country: US (occurrence: US)
  Receive Date: 20140311
  Receipt Date: 20140318
  Transmission Date: 20141002
  Serious: Yes (Life-Threatening, Hospitalization)
  Sender: FDA-Public Use
  Company Number: US-US-EMD SERONO, INC.-7274352

PATIENT
  Age: 17 Year
  Sex: Female
  Weight: 84 kg

DRUGS (2)
  1. REBIF [Suspect]
     Indication: MULTIPLE SCLEROSIS
     Route: 058
     Dates: start: 201401, end: 20140224
  2. ZOLOFT                             /01011401/ [Concomitant]
     Indication: DEPRESSION
     Route: 048
     Dates: start: 20121004, end: 20140224

REACTIONS (2)
  - Depression [Recovered/Resolved]
  - Suicidal ideation [Recovered/Resolved]
